FAERS Safety Report 15183108 (Version 1)
Quarter: 2018Q3

REPORT INFORMATION
  Report Type: Spontaneous
  Country: ES (occurrence: ES)
  Receive Date: 20180723
  Receipt Date: 20180723
  Transmission Date: 20181010
  Serious: Yes (Hospitalization)
  Sender: FDA-Public Use
  Company Number: ES-TEVA-2018-ES-930195

PATIENT
  Age: 72 Year
  Sex: Female

DRUGS (7)
  1. PAROXETINA (2586A) [Concomitant]
     Active Substance: PAROXETINE
     Indication: ANXIETY
     Route: 048
     Dates: start: 2010
  2. PARACETAMOL (12A) [Concomitant]
     Active Substance: ACETAMINOPHEN
     Indication: BRONCHITIS
     Route: 048
     Dates: start: 20141028
  3. SEBIPROX 15 MG/G CHAMPU 100 [Concomitant]
     Indication: DERMATITIS
     Dates: start: 2017
  4. CONDROSAN 400 MG CAPSULAS DURAS, 60 C?PSULAS [Concomitant]
     Indication: PAIN
     Dates: start: 2013
  5. CALCIO + VITAMINA D [Concomitant]
     Indication: OSTEOPOROSIS
     Dosage: 600 MG/ 400 UI
     Route: 048
     Dates: start: 2014
  6. AMOXICILINA + ?CIDO CLAVUL?NICO [Suspect]
     Active Substance: AMOXICILLIN\CLAVULANIC ACID
     Indication: NASOPHARYNGITIS
     Route: 048
     Dates: start: 20180130, end: 20180205
  7. DIPROSALIC SOLUCION CUTANEA , 1 FRASCO DE 60 G [Concomitant]
     Indication: DERMATITIS
     Route: 048
     Dates: start: 2017

REACTIONS (6)
  - Nausea [Recovered/Resolved]
  - Malaise [Recovered/Resolved]
  - Asthenia [Recovered/Resolved]
  - Faeces discoloured [Recovered/Resolved]
  - Diarrhoea haemorrhagic [Recovered/Resolved]
  - Abdominal pain upper [Recovered/Resolved]

NARRATIVE: CASE EVENT DATE: 20180206
